FAERS Safety Report 6340064-1 (Version None)
Quarter: 2009Q3

REPORT INFORMATION
  Report Type: 
  Country: None (occurrence: None)
  Receive Date: 20090903
  Receipt Date: 20090824
  Transmission Date: 20100115
  Serious: Yes (Hospitalization)
  Sender: FDA-Public Use
  Company Number: US-JNJCH-2009017382

PATIENT
  Sex: Female
  Weight: 60.3 kg

DRUGS (17)
  1. ROGAINE [Suspect]
     Indication: ALOPECIA
     Dosage: TEXT:UNSPECIFIED
     Route: 061
     Dates: start: 20090401, end: 20090608
  2. MULTI-VITAMINS [Concomitant]
     Indication: DRUG USE FOR UNKNOWN INDICATION
     Dosage: TEXT:ONE DAILY
     Route: 048
  3. EVISTA [Concomitant]
     Indication: OSTEOPOROSIS POSTMENOPAUSAL
     Dosage: TEXT:60MG ONE A DAY
     Route: 048
  4. METFORMIN HCL [Concomitant]
     Indication: DIABETES MELLITUS
     Dosage: TEXT:500MG BEFORE BREAKFAST AND BEFORE SUPPER
     Route: 048
  5. FUROSEMIDE [Concomitant]
     Indication: HYPERTENSION
     Dosage: TEXT:20MG ONE A DAY
     Route: 048
  6. LIPITOR [Concomitant]
     Indication: HYPERLIPIDAEMIA
     Dosage: TEXT:10MG ONE A DAY
     Route: 048
  7. VITAMIN D [Concomitant]
     Indication: OSTEOPOROSIS POSTMENOPAUSAL
     Dosage: TEXT:400 UNITS DAILY
     Route: 048
  8. ASPIRIN [Concomitant]
     Indication: HYPERLIPIDAEMIA
     Dosage: TEXT:81MG ONE A DAY
     Route: 048
  9. EFFEXOR XR [Concomitant]
     Indication: DEPRESSION
     Dosage: TEXT:150MG ONE A DAY
     Route: 048
  10. LISINOPRIL [Concomitant]
     Indication: HYPERTENSION
     Dosage: TEXT:10MG ONE A DAY
     Route: 048
  11. GLYBURIDE [Concomitant]
     Indication: DIABETES MELLITUS
     Dosage: TEXT:10 MG IN THE AM AND 2 WITH SUPPER
     Route: 048
  12. CALCIUM WITH VITAMIN D [Concomitant]
     Indication: OSTEOPOROSIS POSTMENOPAUSAL
     Dosage: TEXT:600MG / 400 IU TWICE A DAY
     Route: 048
  13. AMBIEN [Concomitant]
     Indication: SLEEP DISORDER
     Dosage: TEXT:5MG TABLET- A QUARTER AT BEDTIME
     Route: 048
  14. FISH OIL [Concomitant]
     Indication: HYPERLIPIDAEMIA
     Dosage: TEXT:1000 MG ONE TABLET DAILYAT HS
     Route: 048
  15. ZOSTER IMMUNOGLOBULIN [Concomitant]
     Indication: DRUG USE FOR UNKNOWN INDICATION
     Dosage: TEXT:19400 UNT/0.65 ML X1
     Route: 058
  16. PREDNISONE [Concomitant]
     Indication: DRUG USE FOR UNKNOWN INDICATION
     Dosage: TEXT:4 PILLS X 2 DAY, 3 X 2, 2 X 2, 1 X 2
     Route: 048
  17. BENADRYL [Concomitant]
     Indication: DRUG USE FOR UNKNOWN INDICATION
     Dosage: TEXT:25 MG-2 QID
     Route: 048

REACTIONS (7)
  - ATAXIA [None]
  - BRADYCARDIA [None]
  - DIZZINESS [None]
  - DYSGEUSIA [None]
  - HEADACHE [None]
  - NYSTAGMUS [None]
  - VOMITING [None]
